FAERS Safety Report 24667468 (Version 6)
Quarter: 2025Q1

REPORT INFORMATION
  Report Type: Spontaneous
  Country: US (occurrence: US)
  Receive Date: 20241126
  Receipt Date: 20250105
  Transmission Date: 20250408
  Serious: Yes (Hospitalization)
  Sender: BIOGEN
  Company Number: US-BIOGEN-2024BI01291269

PATIENT
  Age: 61 Year
  Sex: Female

DRUGS (2)
  1. TYSABRI [Suspect]
     Active Substance: NATALIZUMAB
     Indication: Multiple sclerosis
     Route: 050
     Dates: start: 20181022, end: 20190412
  2. TYSABRI [Suspect]
     Active Substance: NATALIZUMAB
     Route: 050
     Dates: start: 20231101

REACTIONS (9)
  - Syncope [Unknown]
  - Paraesthesia [Unknown]
  - Hypoaesthesia [Unknown]
  - Stress [Unknown]
  - Product dose omission issue [Unknown]
  - Tension headache [Unknown]
  - Malaise [Not Recovered/Not Resolved]
  - Feeling abnormal [Unknown]
  - Depression [Unknown]

NARRATIVE: CASE EVENT DATE: 20241101
